FAERS Safety Report 5467535-4 (Version None)
Quarter: 2007Q3

REPORT INFORMATION
  Report Type: 
  Country: None (occurrence: None)
  Receive Date: 20070925
  Receipt Date: 20070807
  Transmission Date: 20080115
  Serious: Yes (Hospitalization)
  Sender: FDA-Public Use
  Company Number: US-BOEHRINGER INGELHEIM PHARMACEUTICALS, INC.-2005-BP-13969BP

PATIENT
  Sex: Female

DRUGS (30)
  1. MIRAPEX [Suspect]
     Indication: RESTLESS LEGS SYNDROME
     Dosage: 0.5 MG/2/DAY
     Dates: start: 20030925, end: 20050301
  2. MIRAPEX [Suspect]
     Dates: start: 20030610, end: 20030925
  3. MIRAPEX [Suspect]
     Dates: start: 20020430, end: 20030610
  4. MIRAPEX [Suspect]
     Dates: start: 20050301, end: 20050405
  5. XANAX [Concomitant]
     Indication: ANXIETY
     Route: 048
     Dates: start: 20040901
  6. VITAMIN B-12 [Concomitant]
     Route: 030
     Dates: start: 20020320
  7. DELESTROGEN [Concomitant]
     Indication: HORMONE REPLACEMENT THERAPY
     Route: 030
     Dates: start: 20020320, end: 20020320
  8. DELESTROGEN [Concomitant]
     Route: 030
     Dates: start: 20030721
  9. DELESTROGEN [Concomitant]
     Route: 030
     Dates: start: 20030821
  10. DELESTROGEN [Concomitant]
     Route: 030
     Dates: start: 20040101
  11. ESTRATEST [Concomitant]
     Dates: start: 20020412
  12. AMBIEN [Concomitant]
     Indication: RESTLESS LEGS SYNDROME
     Dates: start: 20001002
  13. NEURONTIN [Concomitant]
     Indication: RESTLESS LEGS SYNDROME
     Dates: start: 20010503
  14. SINEMET [Concomitant]
     Indication: RESTLESS LEGS SYNDROME
     Dates: start: 20000911
  15. SINEMET [Concomitant]
     Dates: start: 20010830
  16. SINEMET [Concomitant]
     Dates: start: 20010906
  17. KLONOPIN [Concomitant]
     Indication: RESTLESS LEGS SYNDROME
     Dates: start: 20050317
  18. CYCLOBENZAPRINE HCL [Concomitant]
     Dates: start: 20011030
  19. SKELASIN [Concomitant]
     Dates: start: 20021007
  20. ALPRAZOLAM [Concomitant]
     Dates: start: 20030509
  21. FLONASE [Concomitant]
     Dates: start: 20030509
  22. DETROL LA [Concomitant]
     Dates: start: 20041116
  23. NAPROSYN [Concomitant]
     Indication: BACK PAIN
     Dates: start: 20010601
  24. FLEXERIL [Concomitant]
     Indication: BACK PAIN
     Dates: start: 20010601
  25. ESTRATEST [Concomitant]
  26. CEPHALEXIN [Concomitant]
  27. TRIAMCIN / ORA PST [Concomitant]
  28. DEXAMETHASONE [Concomitant]
  29. AMOXICILLIN [Concomitant]
  30. ACETAMINOPHEN AND HYDROCODONE BITARTRATE [Concomitant]

REACTIONS (13)
  - ANHEDONIA [None]
  - ANXIETY [None]
  - BEREAVEMENT REACTION [None]
  - DEPENDENCE [None]
  - DEPRESSION [None]
  - ECONOMIC PROBLEM [None]
  - EMOTIONAL DISTRESS [None]
  - FEAR [None]
  - FEELING GUILTY [None]
  - OBSESSIVE-COMPULSIVE DISORDER [None]
  - PAIN [None]
  - PATHOLOGICAL GAMBLING [None]
  - ROAD TRAFFIC ACCIDENT [None]
